FAERS Safety Report 16251277 (Version 1)
Quarter: 2019Q2

REPORT INFORMATION
  Report Type: Spontaneous
  Country: US (occurrence: US)
  Receive Date: 20190426
  Receipt Date: 20190426
  Transmission Date: 20190711
  Serious: Yes (Hospitalization)
  Sender: FDA-Public Use
  Company Number: None

PATIENT
  Age: 74 Year
  Sex: Male

DRUGS (15)
  1. CIPROFLOXACN TAB 250MG [Concomitant]
  2. GLIMEPIRIDE TAB 2MG [Concomitant]
  3. GLIMEPIRIDE TAB 4MG [Concomitant]
  4. METHOCARBAM TAB 750MG [Concomitant]
  5. METHYLPRED TAB 4MG [Concomitant]
  6. POT CHLORIDE TAB 10MEQ ER [Concomitant]
  7. FLUTICASONE SPR 50MCG [Concomitant]
     Active Substance: FLUTICASONE
  8. GABAPENTIN TAB 600MG [Concomitant]
  9. ADCIRCA [Suspect]
     Active Substance: TADALAFIL
     Indication: ESSENTIAL HYPERTENSION
     Route: 048
     Dates: start: 20180410
  10. PANTOPRAZOLE TAB 40MG [Concomitant]
  11. HYDROCO/APAP TAB 5-325 [Concomitant]
  12. LEVOTHYROXIN TAB 137MCG [Concomitant]
  13. TORSEMIDE TAB 100MG [Concomitant]
  14. JANUVIA TAB 25MG [Concomitant]
  15. LIOTHYROXIN TAB 25MCG [Concomitant]

REACTIONS (1)
  - Back disorder [None]

NARRATIVE: CASE EVENT DATE: 20190419
